FAERS Safety Report 8176581-1 (Version None)
Quarter: 2012Q1

REPORT INFORMATION
  Report Type: 
  Country: None (occurrence: None)
  Receive Date: 20120301
  Receipt Date: 20120216
  Transmission Date: 20120608
  Serious: Yes (Death)
  Sender: FDA-Public Use
  Company Number: IT-SANOFI-AVENTIS-2012SA010231

PATIENT
  Age: 77 Year
  Sex: Male
  Weight: 80 kg

DRUGS (6)
  1. PREDNISONE TAB [Suspect]
     Indication: PROSTATE CANCER
  2. LENOGRASTIM [Concomitant]
     Route: 065
  3. CABAZITAXEL [Suspect]
     Route: 042
     Dates: start: 20120209, end: 20120209
  4. OMEPRAZOLE [Concomitant]
     Route: 065
  5. CABAZITAXEL [Suspect]
     Indication: PROSTATE CANCER
     Route: 042
     Dates: start: 20111213, end: 20111213
  6. DEXAMETHASONE [Concomitant]
     Route: 065

REACTIONS (1)
  - PANCYTOPENIA [None]
